FAERS Safety Report 17678232 (Version 1)
Quarter: 2020Q2

REPORT INFORMATION
  Report Type: Spontaneous
  Country: US (occurrence: US)
  Receive Date: 20200417
  Receipt Date: 20200417
  Transmission Date: 20200714
  Serious: No
  Sender: FDA-Public Use
  Company Number: US-009507513-2004USA002870

PATIENT
  Age: 75 Year
  Sex: Female

DRUGS (2)
  1. SODIUM CHLORIDE. [Suspect]
     Active Substance: SODIUM CHLORIDE
     Indication: CLOSTRIDIUM DIFFICILE INFECTION
     Dosage: 200 MG CRUSHED TABLET MIXED IN 100 ML 0.9% NORMAL SALINE TWICE DAILY
  2. DIFICID [Suspect]
     Active Substance: FIDAXOMICIN
     Indication: CLOSTRIDIUM DIFFICILE INFECTION
     Dosage: 200 MG CRUSHED TABLET MIXED IN 100 ML 0.9% NORMAL SALINE TWICE DAILY,ADMINISTERED THROUGH THE LOOP I

REACTIONS (1)
  - Off label use [Unknown]
